FAERS Safety Report 6251507-6 (Version None)
Quarter: 2009Q2

REPORT INFORMATION
  Report Type: 
  Country: None (occurrence: None)
  Receive Date: 20090630
  Receipt Date: 20090506
  Transmission Date: 20091009
  Serious: No
  Sender: FDA-Public Use
  Company Number: US-BAUSCH-2009BL002247

PATIENT
  Age: 22 Year
  Sex: Female

DRUGS (1)
  1. ALAWAY [Suspect]
     Indication: EYE PRURITUS
     Route: 047
     Dates: start: 20090506, end: 20090506

REACTIONS (2)
  - DYSPNOEA [None]
  - OPHTHALMIC FLUID DRAINAGE [None]
